FAERS Safety Report 8065835-5 (Version None)
Quarter: 2012Q1

REPORT INFORMATION
  Report Type: 
  Country: None (occurrence: None)
  Receive Date: 20120124
  Receipt Date: 20120116
  Transmission Date: 20120608
  Serious: Yes (Hospitalization)
  Sender: FDA-Public Use
  Company Number: IT-TEVA-318607ISR

PATIENT
  Sex: Male

DRUGS (1)
  1. RIBAVIRIN [Suspect]

REACTIONS (1)
  - ASCITES [None]
